FAERS Safety Report 6454214-X (Version None)
Quarter: 2009Q4

REPORT INFORMATION
  Report Type: 
  Country: None (occurrence: None)
  Receive Date: 20091116
  Receipt Date: 20091110
  Transmission Date: 20100525
  Serious: Yes (Hospitalization)
  Sender: FDA-Public Use
  Company Number: TPA2009A03663

PATIENT
  Sex: Male

DRUGS (1)
  1. ULORIC [Suspect]
     Indication: GOUTY TOPHUS
     Dosage: 40 MG
     Dates: start: 20090101

REACTIONS (1)
  - ARTHRITIS BACTERIAL [None]
